FAERS Safety Report 9921111 (Version 2)
Quarter: 2014Q1

REPORT INFORMATION
  Report Type: Spontaneous
  Country: FR (occurrence: FR)
  Receive Date: 20140225
  Receipt Date: 20140311
  Transmission Date: 20141002
  Serious: No
  Sender: FDA-Public Use
  Company Number: FR-JNJFOC-20140209375

PATIENT
  Age: 85 Year
  Sex: Female

DRUGS (11)
  1. DUROGESIC [Suspect]
     Indication: NEURALGIA
     Dosage: 1 PATCH 25 UG/HR AND 1 PATCH 12.5 UG/HR
     Route: 062
  2. DUROGESIC [Suspect]
     Indication: NEURALGIA
     Route: 062
     Dates: start: 20140103, end: 20140130
  3. DUROGESIC [Suspect]
     Indication: NEURALGIA
     Route: 062
     Dates: start: 20140131, end: 20140212
  4. DUROGESIC [Suspect]
     Indication: NEURALGIA
     Route: 062
     Dates: start: 20130821, end: 20140102
  5. IRBESARTAN [Concomitant]
     Indication: HYPERTENSION
     Route: 048
  6. FENOFIBRATE [Concomitant]
     Indication: HYPERCHOLESTEROLAEMIA
     Route: 048
  7. LYRICA [Concomitant]
     Indication: NEURALGIA
     Route: 048
  8. LYRICA [Concomitant]
     Indication: NEURALGIA
     Route: 048
  9. AMILORIDE HYDROCHLOROTHIAZIDE [Concomitant]
     Indication: HYPERTENSION
     Route: 048
  10. LORAZEPAM [Concomitant]
     Indication: ANXIETY
     Route: 048
  11. PARIET [Concomitant]
     Route: 048

REACTIONS (4)
  - Off label use [Unknown]
  - Dry mouth [Recovered/Resolved]
  - Speech disorder [Recovered/Resolved]
  - Drug prescribing error [Unknown]
